FAERS Safety Report 10751938 (Version 1)
Quarter: 2015Q1

REPORT INFORMATION
  Report Type: Spontaneous
  Country: US (occurrence: US)
  Receive Date: 20150130
  Receipt Date: 20150130
  Transmission Date: 20150721
  Serious: No
  Sender: FDA-Public Use
  Company Number: US-BAUSCH-SYM-2013-13549

PATIENT
  Age: 8 Year
  Sex: Male

DRUGS (1)
  1. XENAZINE [Suspect]
     Active Substance: TETRABENAZINE
     Indication: MOVEMENT DISORDER
     Route: 048
     Dates: start: 20131018

REACTIONS (3)
  - Movement disorder [Unknown]
  - Medication error [Unknown]
  - Somnolence [Unknown]

NARRATIVE: CASE EVENT DATE: 201311
